FAERS Safety Report 13970700 (Version 2)
Quarter: 2017Q4

REPORT INFORMATION
  Report Type: Spontaneous
  Country: US (occurrence: US)
  Receive Date: 20170914
  Receipt Date: 20171005
  Transmission Date: 20180321
  Serious: Yes (Other)
  Sender: FDA-Public Use
  Company Number: US-JNJFOC-20170907356

PATIENT
  Sex: Female
  Weight: 65.77 kg

DRUGS (7)
  1. DURAGESIC [Suspect]
     Active Substance: FENTANYL
     Indication: ENCHONDROMATOSIS
     Route: 062
     Dates: start: 1999
  2. MS CONTIN [Concomitant]
     Active Substance: MORPHINE SULFATE
     Indication: BREAKTHROUGH PAIN
     Route: 065
  3. DEMEROL [Concomitant]
     Active Substance: MEPERIDINE HYDROCHLORIDE
     Indication: BREAKTHROUGH PAIN
     Route: 065
  4. DURAGESIC [Suspect]
     Active Substance: FENTANYL
     Indication: ENCHONDROMATOSIS
     Route: 062
     Dates: end: 2005
  5. XANAX [Concomitant]
     Active Substance: ALPRAZOLAM
     Indication: ANXIETY
     Route: 065
  6. RITALIN [Concomitant]
     Active Substance: METHYLPHENIDATE HYDROCHLORIDE
     Indication: NARCOLEPSY
     Route: 048
     Dates: start: 1997
  7. DURAGESIC [Suspect]
     Active Substance: FENTANYL
     Indication: ENCHONDROMATOSIS
     Route: 062
     Dates: start: 1997, end: 1999

REACTIONS (15)
  - Fall [Unknown]
  - Vomiting [Recovered/Resolved]
  - Ligament rupture [Not Recovered/Not Resolved]
  - Tendon rupture [Not Recovered/Not Resolved]
  - Pain [Unknown]
  - Application site infection [Recovered/Resolved]
  - Wrong technique in product usage process [Unknown]
  - Nausea [Unknown]
  - Ankle fracture [Not Recovered/Not Resolved]
  - Impaired quality of life [Unknown]
  - Dermatitis contact [Recovered/Resolved]
  - Application site rash [Recovered/Resolved]
  - Stress fracture [Unknown]
  - Drug dose omission [Unknown]
  - Product adhesion issue [Unknown]

NARRATIVE: CASE EVENT DATE: 1999
